FAERS Safety Report 8820478 (Version 1)
Quarter: 2012Q4

REPORT INFORMATION
  Report Type: 
  Country: AR (occurrence: AR)
  Receive Date: 20121002
  Receipt Date: 20121002
  Transmission Date: 20130627
  Serious: Yes (Other)
  Sender: FDA-Public Use
  Company Number: PHHY2012AR084350

PATIENT
  Sex: Female

DRUGS (1)
  1. DIOVAN D [Suspect]
     Indication: BLOOD PRESSURE
     Dosage: 80 mg, daily
     Dates: start: 2010

REACTIONS (8)
  - Uterine polyp [Unknown]
  - Endometrial hypertrophy [Unknown]
  - Uterine haemorrhage [Unknown]
  - Angina pectoris [Unknown]
  - Emotional disorder [Unknown]
  - Hypertension [Recovered/Resolved]
  - Palpitations [Unknown]
  - Headache [Recovered/Resolved]
